FAERS Safety Report 7312343-2 (Version None)
Quarter: 2011Q1

REPORT INFORMATION
  Report Type: 
  Country: None (occurrence: None)
  Receive Date: 20110224
  Receipt Date: 20110214
  Transmission Date: 20110831
  Serious: Yes (Other)
  Sender: FDA-Public Use
  Company Number: US-ELI_LILLY_AND_COMPANY-US201101006401

PATIENT
  Sex: Female

DRUGS (9)
  1. VESICARE [Concomitant]
  2. PRAVASTATIN SODIUM [Concomitant]
  3. ANTIHISTAMINES [Concomitant]
  4. FORTEO [Suspect]
     Indication: OSTEOPOROSIS
     Dosage: 20 UG, DAILY (1/D)
  5. PRILOSEC [Concomitant]
  6. ASPIRIN [Concomitant]
     Dosage: UNK, DAILY (1/D)
  7. ROPINIROLE [Concomitant]
  8. FORTEO [Suspect]
     Dosage: 20 UG, DAILY (1/D)
  9. CALCIUM [Concomitant]

REACTIONS (3)
  - ANAEMIA [None]
  - PELVIC FRACTURE [None]
  - FALL [None]
